FAERS Safety Report 5605699-X (Version None)
Quarter: 2008Q1

REPORT INFORMATION
  Report Type: 
  Country: None (occurrence: None)
  Receive Date: 20080129
  Receipt Date: 20080118
  Transmission Date: 20080703
  Serious: Yes (Hospitalization)
  Sender: FDA-Public Use
  Company Number: DE-BAYER-200811548GPV

PATIENT
  Age: 10 Year
  Sex: Male

DRUGS (1)
  1. ULTRAVIST / IOPROMID [Suspect]
     Indication: COMPUTERISED TOMOGRAM
     Dates: start: 20080116

REACTIONS (4)
  - CONVULSION [None]
  - DYSPNOEA [None]
  - EPISTAXIS [None]
  - HYPERTENSIVE CRISIS [None]
